FAERS Safety Report 6853041-9 (Version None)
Quarter: 2010Q3

REPORT INFORMATION
  Report Type: 
  Country: None (occurrence: None)
  Receive Date: 20100717
  Receipt Date: 20071206
  Transmission Date: 20110219
  Serious: No
  Sender: FDA-Public Use
  Company Number: US-PFIZER INC-2007100763

PATIENT
  Sex: Female
  Weight: 4.3 kg

DRUGS (9)
  1. CHANTIX [Suspect]
     Indication: SMOKING CESSATION THERAPY
     Route: 048
     Dates: start: 20071123
  2. CLOZARIL [Concomitant]
  3. TRILAFON [Concomitant]
  4. ARTANE [Concomitant]
  5. XANAX [Concomitant]
  6. MOTRIN [Concomitant]
  7. CLARITIN [Concomitant]
  8. PRILOSEC [Concomitant]
  9. THYROID TAB [Concomitant]

REACTIONS (3)
  - ABNORMAL DREAMS [None]
  - DRUG INEFFECTIVE [None]
  - NAUSEA [None]
